FAERS Safety Report 17266491 (Version 5)
Quarter: 2020Q2

REPORT INFORMATION
  Report Type: Spontaneous
  Country: DE (occurrence: DE)
  Receive Date: 20200114
  Receipt Date: 20200508
  Transmission Date: 20200713
  Serious: Yes (Other)
  Sender: FDA-Public Use
  Company Number: DE-ROCHE-2518719

PATIENT
  Sex: Male

DRUGS (2)
  1. SOMATROPIN. [Suspect]
     Active Substance: SOMATROPIN
     Route: 058
     Dates: start: 20100216, end: 20101123
  2. SOMATROPIN. [Suspect]
     Active Substance: SOMATROPIN
     Indication: GROWTH HORMONE DEFICIENCY
     Dosage: OTHER DOSES:0.03 MG/KG (0.028 MG/KG) QD AND 0.03 MG/KG (0.025 MG/KG) QD
     Route: 058
     Dates: start: 20100126

REACTIONS (14)
  - Faecaloma [Recovered/Resolved]
  - Skin hyperpigmentation [Recovered/Resolved]
  - Deformity thorax [Recovered/Resolved]
  - Sebaceous gland disorder [Recovered/Resolved]
  - Social avoidant behaviour [Recovered/Resolved]
  - Emotional disorder [Recovered/Resolved]
  - Melanocytic naevus [Not Recovered/Not Resolved]
  - Bone pain [Recovered/Resolved]
  - Self esteem decreased [Recovered/Resolved]
  - Bone pain [Recovered/Resolved]
  - Dizziness [Not Recovered/Not Resolved]
  - Dizziness [Recovered/Resolved]
  - Skin papilloma [Recovered/Resolved]
  - Abdominal distension [Recovered/Resolved]

NARRATIVE: CASE EVENT DATE: 20100126
